FAERS Safety Report 13196265 (Version 3)
Quarter: 2017Q2

REPORT INFORMATION
  Report Type: Spontaneous
  Country: US (occurrence: US)
  Receive Date: 20170208
  Receipt Date: 20170420
  Transmission Date: 20170830
  Serious: Yes (Hospitalization)
  Sender: FDA-Public Use
  Company Number: US-PFIZER INC-2017053291

PATIENT
  Age: 70 Year
  Sex: Female
  Weight: 66 kg

DRUGS (9)
  1. ACICLOVIR [Suspect]
     Active Substance: ACYCLOVIR
     Indication: VIRAL INFECTION
  2. VFEND [Suspect]
     Active Substance: VORICONAZOLE
     Indication: ASPERGILLUS INFECTION
     Dosage: 200 MG, 2X/DAY, EVERY 12 HOURS
     Route: 048
     Dates: start: 20150929, end: 201701
  3. FOLIC ACID. [Suspect]
     Active Substance: FOLIC ACID
     Dosage: 1 MG, 1X/DAY
     Route: 048
     Dates: start: 20150515
  4. PREDNISONE. [Concomitant]
     Active Substance: PREDNISONE
     Dosage: 200 MG, 1X/DAILY (5 DAYS ONCE A MONTH)
     Dates: start: 20150515
  5. MERCAPTOPURINE. [Suspect]
     Active Substance: MERCAPTOPURINE
     Indication: ACUTE LYMPHOCYTIC LEUKAEMIA
     Dosage: 50 MG, 2X/DAY
  6. METHOTREXATE. [Concomitant]
     Active Substance: METHOTREXATE
     Dosage: 2.5 MG, WEEKLY(14 TABLETS ONCE EVERY 7 DAYS)
     Dates: start: 20150515
  7. ACICLOVIR [Suspect]
     Active Substance: ACYCLOVIR
     Indication: ORAL HERPES
     Dosage: 400 MG, 2X/DAY
     Route: 048
     Dates: start: 20150515
  8. ACICLOVIR [Suspect]
     Active Substance: ACYCLOVIR
     Indication: STOMATITIS
  9. BACTRIM [Concomitant]
     Active Substance: SULFAMETHOXAZOLE\TRIMETHOPRIM
     Dosage: 800 MG(ONCE/DAY 3 TIMES WEEKLY)
     Dates: start: 20150515

REACTIONS (4)
  - Weight fluctuation [Unknown]
  - White blood cell count decreased [Unknown]
  - Oral herpes [Recovering/Resolving]
  - Liver function test increased [Unknown]

NARRATIVE: CASE EVENT DATE: 201701
